FAERS Safety Report 16396596 (Version 3)
Quarter: 2019Q4

REPORT INFORMATION
  Report Type: Spontaneous
  Country: US (occurrence: US)
  Receive Date: 20190606
  Receipt Date: 20191015
  Transmission Date: 20200122
  Serious: Yes (Other)
  Sender: FDA-Public Use
  Company Number: US-ASTRAZENECA-2019SE82393

PATIENT
  Sex: Male
  Weight: 152.3 kg

DRUGS (43)
  1. PRILOSEC [Suspect]
     Active Substance: OMEPRAZOLE MAGNESIUM
     Indication: GASTROOESOPHAGEAL REFLUX DISEASE
     Dosage: GENERIC
     Route: 048
     Dates: start: 2014
  2. LISINOPRIL. [Concomitant]
     Active Substance: LISINOPRIL
     Indication: HYPERTENSION
  3. DICLOFENAC [Concomitant]
     Active Substance: DICLOFENAC
  4. SIMVASTATIN. [Concomitant]
     Active Substance: SIMVASTATIN
  5. VENTOLIN [Concomitant]
     Active Substance: ALBUTEROL SULFATE
  6. CYCLOBENZAPRINE. [Concomitant]
     Active Substance: CYCLOBENZAPRINE
  7. AMOXICILLIN. [Concomitant]
     Active Substance: AMOXICILLIN
  8. LYRICA [Concomitant]
     Active Substance: PREGABALIN
  9. FENOFIBRATE. [Concomitant]
     Active Substance: FENOFIBRATE
     Indication: BLOOD CHOLESTEROL
  10. METFORMIN [Concomitant]
     Active Substance: METFORMIN HYDROCHLORIDE
     Indication: DIABETES MELLITUS
  11. ASPIRINE [Concomitant]
     Active Substance: ASPIRIN
  12. DIAZEPAM. [Concomitant]
     Active Substance: DIAZEPAM
  13. CRESTOR [Concomitant]
     Active Substance: ROSUVASTATIN CALCIUM
  14. PRAVACHOL [Concomitant]
     Active Substance: PRAVASTATIN SODIUM
  15. GLIMEPIRIDE. [Concomitant]
     Active Substance: GLIMEPIRIDE
     Indication: BLOOD CHOLESTEROL
  16. AMITRIPTYLINE [Concomitant]
     Active Substance: AMITRIPTYLINE
  17. GLIMEPIRIDE. [Concomitant]
     Active Substance: GLIMEPIRIDE
  18. LISINOPRIL. [Concomitant]
     Active Substance: LISINOPRIL
  19. PRILOSEC [Suspect]
     Active Substance: OMEPRAZOLE MAGNESIUM
     Indication: GASTROOESOPHAGEAL REFLUX DISEASE
     Route: 048
     Dates: start: 2001, end: 2002
  20. TRAMADOL. [Concomitant]
     Active Substance: TRAMADOL
  21. ALPRAZOLAM. [Concomitant]
     Active Substance: ALPRAZOLAM
  22. OXYCODONE- ACETAMINOPHEN [Concomitant]
     Active Substance: ACETAMINOPHEN\OXYCODONE HYDROCHLORIDE
  23. CARVEDILOL. [Concomitant]
     Active Substance: CARVEDILOL
  24. PIOGLITAZONE. [Concomitant]
     Active Substance: PIOGLITAZONE
  25. TYLENOL [Concomitant]
     Active Substance: ACETAMINOPHEN
  26. PRILOSEC OTC [Suspect]
     Active Substance: OMEPRAZOLE MAGNESIUM
     Indication: GASTROOESOPHAGEAL REFLUX DISEASE
     Route: 048
     Dates: start: 2002, end: 2014
  27. PRILOSEC OTC [Suspect]
     Active Substance: OMEPRAZOLE MAGNESIUM
     Indication: GASTROOESOPHAGEAL REFLUX DISEASE
     Route: 048
     Dates: start: 1990, end: 2018
  28. METOPROLOL. [Concomitant]
     Active Substance: METOPROLOL
     Indication: HYPERTENSION
  29. GABAPENTIN. [Concomitant]
     Active Substance: GABAPENTIN
  30. NAPROXEN. [Concomitant]
     Active Substance: NAPROXEN
  31. MOTRIN [Concomitant]
     Active Substance: IBUPROFEN
  32. ZETIA [Concomitant]
     Active Substance: EZETIMIBE
  33. PRILOSEC [Suspect]
     Active Substance: OMEPRAZOLE MAGNESIUM
     Indication: GASTROOESOPHAGEAL REFLUX DISEASE
     Route: 048
     Dates: start: 1990, end: 2018
  34. CARVEDILOL. [Concomitant]
     Active Substance: CARVEDILOL
  35. PIOGLITAZONE. [Concomitant]
     Active Substance: PIOGLITAZONE
  36. PRAVASTATIN. [Concomitant]
     Active Substance: PRAVASTATIN
  37. AMLODIPINE [Concomitant]
     Active Substance: AMLODIPINE BESYLATE
  38. FENOFIBRATE. [Concomitant]
     Active Substance: FENOFIBRATE
  39. ROSUVASTATIN. [Concomitant]
     Active Substance: ROSUVASTATIN
     Indication: BLOOD CHOLESTEROL ABNORMAL
  40. DULOXETINE. [Concomitant]
     Active Substance: DULOXETINE
  41. POLYETHYLENE GLYCOL [Concomitant]
     Active Substance: POLYETHYLENE GLYCOLS
  42. ELAVIL [Concomitant]
     Active Substance: AMITRIPTYLINE HYDROCHLORIDE
  43. URIMAX [Concomitant]
     Active Substance: TAMSULOSIN HYDROCHLORIDE

REACTIONS (3)
  - Acute kidney injury [Not Recovered/Not Resolved]
  - Chronic kidney disease [Not Recovered/Not Resolved]
  - Renal failure [Unknown]
